FAERS Safety Report 6844097-8 (Version None)
Quarter: 2010Q2

REPORT INFORMATION
  Report Type: 
  Country: None (occurrence: None)
  Receive Date: 20100629
  Receipt Date: 20100413
  Transmission Date: 20101027
  Serious: Yes (Other)
  Sender: FDA-Public Use
  Company Number: US-WYE-H14994510

PATIENT
  Age: 74 Year
  Sex: Male
  Weight: 77.18 kg

DRUGS (9)
  1. PRISTIQ [Suspect]
     Indication: DEPRESSION
     Dosage: 50 MG 1X PER 1 DAY, ORAL
     Route: 048
     Dates: start: 20100413
  2. PRISTIQ [Suspect]
     Indication: DIZZINESS
     Dosage: 50 MG 1X PER 1 DAY, ORAL
     Route: 048
     Dates: start: 20100413
  3. MECLIZINE [Concomitant]
  4. ACETYLSALICYLIC AICD (ACETYLSALICYLIC ACID) [Concomitant]
  5. SYNTHROID [Concomitant]
  6. AVAPRO [Concomitant]
  7. CRESTOR (ROSUVASATIN) [Concomitant]
  8. ALPRAZOLAM [Concomitant]
  9. MULTIVITAMINS (ASCORBIC ACID/ERGOCALCIFEROL/FOLIC ACID/NICOTINAMIDE/PA [Concomitant]

REACTIONS (1)
  - NAUSEA [None]
